FAERS Safety Report 24097156 (Version 1)
Quarter: 2024Q3

REPORT INFORMATION
  Report Type: Spontaneous
  Country: US (occurrence: US)
  Receive Date: 20240716
  Receipt Date: 20240716
  Transmission Date: 20241016
  Serious: No
  Sender: PFIZER
  Company Number: US-PFIZER INC-202400213905

PATIENT
  Age: 63 Year
  Sex: Female

DRUGS (6)
  1. IBRANCE [Suspect]
     Active Substance: PALBOCICLIB
     Dosage: TAKE 1 TABLET (75MG) BY MOUTH DAILY FOR 21 DAYS, FOLLOWED BY 7 DAYS OFF,28 DAY CYCLE
     Route: 048
  2. ZINC [Concomitant]
     Active Substance: ZINC
     Dosage: UNK
  3. VITAMIN C [Concomitant]
     Active Substance: ASCORBIC ACID
     Dosage: UNK
  4. VITAMIN D3 [Concomitant]
     Active Substance: CHOLECALCIFEROL
     Dosage: UNK
  5. FISH OIL [Concomitant]
     Active Substance: FISH OIL
     Dosage: UNK
  6. MENAQUINONE 6 [Concomitant]
     Active Substance: MENAQUINONE 6
     Dosage: UNK

REACTIONS (1)
  - Rash [Not Recovered/Not Resolved]
